FAERS Safety Report 9684215 (Version 1)
Quarter: 2013Q4

REPORT INFORMATION
  Report Type: Spontaneous
  Country: US (occurrence: US)
  Receive Date: 20131112
  Receipt Date: 20131112
  Transmission Date: 20140711
  Serious: Yes (Hospitalization)
  Sender: FDA-Public Use
  Company Number: US-GLAXOSMITHKLINE-A1048463A

PATIENT
  Age: 46 Year
  Sex: Male

DRUGS (7)
  1. MEPRON [Suspect]
     Indication: GRANULOMATOSIS WITH POLYANGIITIS
     Dosage: 2TSP PER DAY
     Route: 048
     Dates: start: 201105
  2. DILTIAZEM [Suspect]
     Indication: PRODUCT USED FOR UNKNOWN INDICATION
     Dosage: 240MG PER DAY
     Route: 048
  3. RITUXAN [Suspect]
     Indication: GRANULOMATOSIS WITH POLYANGIITIS
     Dosage: 10MG CYCLIC
     Route: 042
  4. ZOCOR [Suspect]
     Indication: BLOOD CHOLESTEROL INCREASED
     Dosage: 1TAB PER DAY
  5. ZOLOFT [Suspect]
     Indication: DEPRESSION
     Dosage: 50MG PER DAY
  6. VENOFER [Concomitant]
  7. ASPIRIN [Concomitant]

REACTIONS (9)
  - Convulsion [Recovered/Resolved]
  - Vomiting [Recovering/Resolving]
  - Diarrhoea [Recovering/Resolving]
  - Arthralgia [Recovering/Resolving]
  - Fatigue [Recovering/Resolving]
  - Abdominal discomfort [Recovering/Resolving]
  - Therapeutic response unexpected [Unknown]
  - Mental disorder [Recovering/Resolving]
  - Disability [Unknown]
